FAERS Safety Report 7012073-0 (Version None)
Quarter: 2010Q3

REPORT INFORMATION
  Report Type: 
  Country: None (occurrence: None)
  Receive Date: 20100922
  Receipt Date: 20100922
  Transmission Date: 20110219
  Serious: Yes (Hospitalization)
  Sender: FDA-Public Use
  Company Number: None

PATIENT
  Sex: Female
  Weight: 73 kg

DRUGS (3)
  1. BEVACIZUMAB (RHUMAB VEGF) [Suspect]
     Dosage: 689 MG
  2. CAMPTOSAR [Suspect]
     Dosage: 378 MG
  3. ELOXATIN [Suspect]
     Dosage: 198 MG

REACTIONS (4)
  - MALAISE [None]
  - PULSE ABSENT [None]
  - RESUSCITATION [None]
  - SMALL INTESTINAL OBSTRUCTION [None]
